FAERS Safety Report 7152844-3 (Version None)
Quarter: 2010Q4

REPORT INFORMATION
  Report Type: 
  Country: None (occurrence: None)
  Receive Date: 20101209
  Receipt Date: 20101209
  Transmission Date: 20110411
  Serious: Yes (Life-Threatening, Disabling, Other)
  Sender: FDA-Public Use
  Company Number: None

PATIENT
  Sex: Female
  Weight: 61.2356 kg

DRUGS (1)
  1. KLONOPIN [Suspect]
     Indication: ANXIETY
     Dosage: 1MG - 3XDAY DAILY
     Dates: start: 20100710, end: 20100804

REACTIONS (5)
  - CONFUSIONAL STATE [None]
  - DEPRESSION [None]
  - NERVOUSNESS [None]
  - NIGHTMARE [None]
  - SUICIDAL IDEATION [None]
